FAERS Safety Report 4797972-2 (Version None)
Quarter: 2005Q3

REPORT INFORMATION
  Report Type: 
  Country: None (occurrence: None)
  Receive Date: 20050929
  Receipt Date: 20050829
  Transmission Date: 20060218
  Serious: No
  Sender: FDA-Public Use
  Company Number: 05P-163-0309679

PATIENT
  Age: 57 Year
  Sex: Female

DRUGS (4)
  1. HUMIRA [Suspect]
     Indication: RHEUMATOID ARTHRITIS
     Dosage: 40 MG, 1 IN 2 WK, SUBCUTANEOUS
     Route: 058
     Dates: start: 20050810, end: 20050819
  2. ZOLPIDEM TARTRATE [Concomitant]
  3. IBUPROFEN [Concomitant]
  4. SYMBOLTA [Concomitant]

REACTIONS (1)
  - MYALGIA [None]
